FAERS Safety Report 19458534 (Version 1)
Quarter: 2021Q2

REPORT INFORMATION
  Report Type: Spontaneous
  Country: US (occurrence: US)
  Receive Date: 20210624
  Receipt Date: 20210624
  Transmission Date: 20210717
  Serious: Yes (Other)
  Sender: FDA-Public Use
  Company Number: US-FRESENIUS KABI-FK202106356

PATIENT
  Age: 87 Year
  Sex: Female

DRUGS (8)
  1. IMMUNOGLOBULINS NOS [Concomitant]
     Active Substance: IMMUNE GLOBULIN NOS
     Indication: COAGULOPATHY
     Dosage: 25 G/DAY
     Route: 042
  2. PLASMA [Concomitant]
     Active Substance: HUMAN PLASMA
     Indication: COAGULOPATHY
     Dosage: 3 UNITS OF FRESH FROZEN PLASMA (FFP)
     Route: 065
  3. VITAMIN K [Concomitant]
     Active Substance: PHYTONADIONE
     Indication: COAGULOPATHY
     Dosage: 10 MG/DAY
     Route: 042
  4. PREDNISONE. [Concomitant]
     Active Substance: PREDNISONE
     Indication: COAGULOPATHY
     Dosage: 1 MG/KG/DAY
     Route: 065
  5. DEXAMETHASONE INJECTION (MANUFACTURER UNKNOWN) [Suspect]
     Active Substance: DEXAMETHASONE
     Indication: COAGULOPATHY
     Route: 042
  6. LEVOFLOXACIN (MANUFACTURER UNKNOWN) [Suspect]
     Active Substance: LEVOFLOXACIN
     Indication: PNEUMONIA
     Route: 042
  7. OCTREOTIDE. [Concomitant]
     Active Substance: OCTREOTIDE
     Indication: COAGULOPATHY
     Route: 065
  8. PIPERACILLIN/TAZOBACTAM (MANUFACTURER UNKNOWN) [Suspect]
     Active Substance: PIPERACILLIN SODIUM\TAZOBACTAM SODIUM
     Indication: PNEUMONIA
     Dosage: PIPERACILLIN AND TAZOBACTAM
     Route: 065

REACTIONS (2)
  - Drug ineffective [Unknown]
  - Factor V inhibition [Unknown]
